FAERS Safety Report 4782596-3 (Version None)
Quarter: 2005Q3

REPORT INFORMATION
  Report Type: 
  Country: None (occurrence: None)
  Receive Date: 20050929
  Receipt Date: 20050414
  Transmission Date: 20060218
  Serious: No
  Sender: FDA-Public Use
  Company Number: 402496

PATIENT
  Age: 72 Year
  Sex: Male

DRUGS (1)
  1. COREG [Suspect]
     Indication: HYPERTENSION
     Dosage: 6.5MG TWICE PER DAY
     Route: 048

REACTIONS (2)
  - DECREASED INTEREST [None]
  - DEPRESSION [None]
